FAERS Safety Report 4619940-3 (Version None)
Quarter: 2005Q1

REPORT INFORMATION
  Report Type: 
  Country: None (occurrence: None)
  Receive Date: 20050323
  Receipt Date: 20050323
  Transmission Date: 20050727
  Serious: Yes (Other)
  Sender: FDA-Public Use
  Company Number: None

PATIENT
  Age: 16 Year
  Sex: Male
  Weight: 106.1417 kg

DRUGS (1)
  1. STRATTERA [Suspect]

REACTIONS (4)
  - FATIGUE [None]
  - LABORATORY TEST ABNORMAL [None]
  - PRURITUS [None]
  - SOMNOLENCE [None]
